FAERS Safety Report 6346599-X (Version None)
Quarter: 2009Q3

REPORT INFORMATION
  Report Type: 
  Country: None (occurrence: None)
  Receive Date: 20090831
  Receipt Date: 20090821
  Transmission Date: 20100115
  Serious: Yes (Other)
  Sender: FDA-Public Use
  Company Number: CHPA2009US17395

PATIENT

DRUGS (1)
  1. BUCKLEY'S UNKNOWN (NCH) [Suspect]
     Dosage: ORAL
     Route: 048

REACTIONS (1)
  - DRUG DEPENDENCE [None]
